FAERS Safety Report 7285124-6 (Version None)
Quarter: 2011Q1

REPORT INFORMATION
  Report Type: 
  Country: None (occurrence: None)
  Receive Date: 20110210
  Receipt Date: 20110131
  Transmission Date: 20110831
  Serious: Yes (Hospitalization)
  Sender: FDA-Public Use
  Company Number: PHHY2011US07569

PATIENT
  Sex: Female
  Weight: 89 kg

DRUGS (2)
  1. ANTIBIOTICS [Concomitant]
     Dosage: UNK
  2. EXJADE [Suspect]
     Indication: MYELODYSPLASTIC SYNDROME
     Dosage: 2500 MG, QD
     Route: 048

REACTIONS (2)
  - KIDNEY INFECTION [None]
  - ABDOMINAL DISCOMFORT [None]
